FAERS Safety Report 10157515 (Version 4)
Quarter: 2014Q2

REPORT INFORMATION
  Report Type: Spontaneous
  Country: FR (occurrence: FR)
  Receive Date: 20140507
  Receipt Date: 20140629
  Transmission Date: 20141212
  Serious: Yes (Hospitalization, Other)
  Sender: FDA-Public Use
  Company Number: PHHY2014FR054232

PATIENT
  Age: 72 Year
  Sex: Female
  Weight: 64 kg

DRUGS (2)
  1. TRAMADOL+PARACETAMOL SANDOZ [Suspect]
     Indication: MUSCULOSKELETAL PAIN
  2. TRAMADOL+PARACETAMOL SANDOZ [Suspect]
     Indication: ARTHRALGIA
     Dosage: 3 DF, QD (ATCH NO:07205 AND 07215)
     Dates: start: 20140218, end: 20140220

REACTIONS (41)
  - Haematoma [Recovering/Resolving]
  - Rib fracture [Recovering/Resolving]
  - Fall [Unknown]
  - Dyspnoea [Recovering/Resolving]
  - Head injury [Not Recovered/Not Resolved]
  - Abasia [Recovering/Resolving]
  - Aphasia [Recovering/Resolving]
  - Gait disturbance [Recovering/Resolving]
  - Abdominal distension [Recovering/Resolving]
  - Nervous system disorder [Recovering/Resolving]
  - Amnesia [Recovering/Resolving]
  - Orthostatic hypotension [Recovering/Resolving]
  - Tendon disorder [Recovering/Resolving]
  - Arthralgia [Recovering/Resolving]
  - Rotator cuff syndrome [Recovering/Resolving]
  - Anaemia [Recovering/Resolving]
  - Tendonitis [Recovering/Resolving]
  - Red blood cell count decreased [Recovering/Resolving]
  - Musculoskeletal pain [Recovering/Resolving]
  - Groin pain [Recovering/Resolving]
  - Back pain [Recovering/Resolving]
  - Osteoarthritis [Recovering/Resolving]
  - Arthritis [Recovering/Resolving]
  - Spondylolisthesis [Recovering/Resolving]
  - Constipation [Recovering/Resolving]
  - Haemorrhage [Unknown]
  - Contusion [Recovering/Resolving]
  - Wound [Not Recovered/Not Resolved]
  - Hypotension [Recovering/Resolving]
  - Eating disorder [Recovering/Resolving]
  - Fatigue [Recovering/Resolving]
  - Food aversion [Recovering/Resolving]
  - Pain in extremity [Not Recovered/Not Resolved]
  - Vertigo [Recovering/Resolving]
  - Pyrexia [Recovered/Resolved]
  - Influenza A virus test positive [Recovering/Resolving]
  - Influenza [Recovering/Resolving]
  - Asthma [Recovering/Resolving]
  - Vitamin D deficiency [Recovering/Resolving]
  - Asthenia [Recovering/Resolving]
  - Nausea [Recovering/Resolving]
